FAERS Safety Report 4979438-X (Version None)
Quarter: 2006Q2

REPORT INFORMATION
  Report Type: 
  Country: None (occurrence: None)
  Receive Date: 20060421
  Receipt Date: 20060413
  Transmission Date: 20061013
  Serious: Yes (Life-Threatening, Hospitalization)
  Sender: FDA-Public Use
  Company Number: AU-ABBOTT-06P-008-0330803-00

PATIENT
  Age: 40 Year
  Sex: Male

DRUGS (5)
  1. VALPROATE SODIUM [Suspect]
     Indication: INTENTIONAL OVERDOSE
     Route: 065
  2. AMISULPRIDE [Suspect]
     Indication: INTENTIONAL OVERDOSE
     Route: 065
  3. MIRTAZAPINE [Suspect]
     Indication: INTENTIONAL OVERDOSE
     Route: 065
  4. AMITRIPTYLINE [Suspect]
     Indication: INTENTIONAL OVERDOSE
     Route: 065
  5. OMEPRAZOLE [Suspect]
     Indication: INTENTIONAL OVERDOSE
     Route: 065

REACTIONS (4)
  - ELECTROCARDIOGRAM QRS COMPLEX PROLONGED [None]
  - ELECTROCARDIOGRAM QT PROLONGED [None]
  - MULTIPLE DRUG OVERDOSE INTENTIONAL [None]
  - TORSADE DE POINTES [None]
